FAERS Safety Report 8455076-1 (Version None)
Quarter: 2012Q2

REPORT INFORMATION
  Report Type: 
  Country: None (occurrence: None)
  Receive Date: 20120621
  Receipt Date: 20120608
  Transmission Date: 20120825
  Serious: Yes (Hospitalization)
  Sender: FDA-Public Use
  Company Number: US-BAYER-2012-057479

PATIENT
  Age: 62 Year
  Sex: Male
  Weight: 83.3 kg

DRUGS (1)
  1. MOXIFLOXACIN [Suspect]
     Dosage: UNK
     Dates: end: 20120515

REACTIONS (1)
  - DEEP VEIN THROMBOSIS [None]
